FAERS Safety Report 23556012 (Version 2)
Quarter: 2024Q1

REPORT INFORMATION
  Report Type: Spontaneous
  Country: CN (occurrence: CN)
  Receive Date: 20240222
  Receipt Date: 20240226
  Transmission Date: 20240409
  Serious: Yes (Other)
  Sender: FDA-Public Use
  Company Number: CN-JNJFOC-20240250423

PATIENT
  Sex: Male

DRUGS (1)
  1. SPORANOX [Suspect]
     Active Substance: ITRACONAZOLE
     Indication: Dermatophytosis of nail
     Route: 065

REACTIONS (7)
  - Endocrine disorder [Unknown]
  - Cardiovascular disorder [Unknown]
  - Heart rate increased [Unknown]
  - Dizziness [Unknown]
  - Rash [Unknown]
  - Somnolence [Unknown]
  - Product label issue [Unknown]
